FAERS Safety Report 10359459 (Version 1)
Quarter: 2014Q3

REPORT INFORMATION
  Report Type: Spontaneous
  Country: US (occurrence: US)
  Receive Date: 20140804
  Receipt Date: 20140804
  Transmission Date: 20150326
  Serious: Yes (Hospitalization, Other)
  Sender: FDA-Public Use
  Company Number: US-009507513-1407USA011524

PATIENT
  Sex: Female
  Weight: 109.3 kg

DRUGS (1)
  1. NUVARING [Suspect]
     Active Substance: ETHINYL ESTRADIOL\ETONOGESTREL
     Dosage: UNK
     Route: 067
     Dates: end: 20080110

REACTIONS (11)
  - Nausea [Unknown]
  - Sinus disorder [Unknown]
  - Sinus operation [Unknown]
  - Foreign body [Unknown]
  - Ovarian cyst [Unknown]
  - Depression [Unknown]
  - Vulvovaginal mycotic infection [Unknown]
  - Ovarian cyst ruptured [Unknown]
  - Cystitis [Unknown]
  - Mesenteric vein thrombosis [Unknown]
  - Appendicectomy [Unknown]

NARRATIVE: CASE EVENT DATE: 200712
